FAERS Safety Report 8995784 (Version 1)
Quarter: 2013Q1

REPORT INFORMATION
  Report Type: Spontaneous
  Country: US (occurrence: US)
  Receive Date: 20130103
  Receipt Date: 20130103
  Transmission Date: 20140127
  Serious: No
  Sender: FDA-Public Use
  Company Number: US-ABBOTT-12P-163-0957091-00

PATIENT
  Sex: Female
  Weight: 50.85 kg

DRUGS (3)
  1. SYNTHROID [Suspect]
     Indication: HYPOTHYROIDISM
     Dosage: UNKNOWN
  2. LEVOXYL [Suspect]
     Indication: HYPOTHYROIDISM
  3. TIROSINT [Suspect]
     Indication: HYPOTHYROIDISM
     Dosage: 1 IN 1 DAY, IN MORNING
     Dates: start: 20120706

REACTIONS (1)
  - Abdominal discomfort [Unknown]
